FAERS Safety Report 8270871-X (Version None)
Quarter: 2012Q2

REPORT INFORMATION
  Report Type: 
  Country: None (occurrence: None)
  Receive Date: 20120410
  Receipt Date: 20120410
  Transmission Date: 20120825
  Serious: Yes (Other)
  Sender: FDA-Public Use
  Company Number: None

PATIENT
  Age: 87 Year
  Sex: Female
  Weight: 84 kg

DRUGS (12)
  1. FENTANYL-100 [Concomitant]
     Route: 061
  2. KETOTIFEN OPHTHALMIC DROPS [Concomitant]
  3. CEFTRIAXONE [Suspect]
     Indication: URINARY TRACT INFECTION
     Dosage: 1 GM
     Route: 040
     Dates: start: 20111013, end: 20111014
  4. OMEGA 3 FATTY ACID [Concomitant]
     Route: 048
  5. MULTI-VITAMIN [Concomitant]
     Route: 048
  6. ASPIRIN [Concomitant]
     Route: 048
  7. PANTOPRAZOLE [Concomitant]
     Route: 042
  8. AMIODARONE HCL [Concomitant]
     Route: 048
  9. LACTOBACILLUS ACIDOPHILUS [Concomitant]
     Route: 048
  10. CHOLECALCIFEROL [Concomitant]
     Route: 048
  11. INSULIN WITH ASPART [Concomitant]
  12. WARFARIN SODIUM [Concomitant]
     Route: 048

REACTIONS (3)
  - TOXIC EPIDERMAL NECROLYSIS [None]
  - TUBULOINTERSTITIAL NEPHRITIS [None]
  - SEPTIC SHOCK [None]
